FAERS Safety Report 7240931-0 (Version None)
Quarter: 2011Q1

REPORT INFORMATION
  Report Type: 
  Country: None (occurrence: None)
  Receive Date: 20110124
  Receipt Date: 20110118
  Transmission Date: 20110831
  Serious: Yes (Death)
  Sender: FDA-Public Use
  Company Number: PHHY2010DE76758

PATIENT
  Sex: Male

DRUGS (7)
  1. CORTICOID [Concomitant]
     Dosage: UNK
     Route: 048
     Dates: start: 20101104
  2. SIMULECT [Suspect]
     Indication: CHRONIC GRAFT VERSUS HOST DISEASE
  3. SANDIMMUNE [Suspect]
     Indication: BONE MARROW TRANSPLANT
     Dosage: 25 MG/DAY
     Route: 048
     Dates: start: 20100301
  4. SANDIMMUNE [Suspect]
     Indication: GRAFT VERSUS HOST DISEASE
  5. CELLCEPT [Concomitant]
     Indication: BONE MARROW TRANSPLANT
     Dosage: 1000MG/D
     Route: 048
     Dates: start: 20100301
  6. CORTICOID [Concomitant]
     Dosage: 25MG/D
     Route: 048
     Dates: start: 20101001
  7. SIMULECT [Suspect]
     Indication: BONE MARROW TRANSPLANT
     Dosage: ONCE EVERY WEEK, TOTAL FOR 4 TIMES
     Route: 042
     Dates: start: 20101015, end: 20101119

REACTIONS (9)
  - CHRONIC GRAFT VERSUS HOST DISEASE [None]
  - MULTI-ORGAN DISORDER [None]
  - RASH [None]
  - OEDEMA [None]
  - BLOOD DISORDER [None]
  - GAIT DISTURBANCE [None]
  - TESTICULAR SWELLING [None]
  - GENERAL PHYSICAL HEALTH DETERIORATION [None]
  - SKIN DISCOLOURATION [None]
